FAERS Safety Report 9926149 (Version 1)
Quarter: 2014Q1

REPORT INFORMATION
  Report Type: Report from Study
  Country: US (occurrence: US)
  Receive Date: 20140226
  Receipt Date: 20140226
  Transmission Date: 20141002
  Serious: Yes (Other)
  Sender: FDA-Public Use
  Company Number: US-ACTELION-A-US2014-95213

PATIENT
  Age: 22 Year
  Sex: Male

DRUGS (4)
  1. VELETRI [Suspect]
     Indication: COR PULMONALE CHRONIC
     Dosage: 16 NG/KG, PER MIN
     Route: 042
     Dates: start: 20140118
  2. ADCIRCA [Concomitant]
  3. LETAIRIS [Concomitant]
  4. TYVASO [Concomitant]

REACTIONS (1)
  - Biopsy liver [Unknown]
